FAERS Safety Report 24380756 (Version 4)
Quarter: 2025Q2

REPORT INFORMATION
  Report Type: Other
  Country: US (occurrence: US)
  Receive Date: 20240930
  Receipt Date: 20250429
  Transmission Date: 20250716
  Serious: No
  Sender: TRAVERE THERAPEUTICS
  Company Number: US-TRAVERE-2024TVT00946

PATIENT
  Age: 44 Year
  Sex: Male

DRUGS (1)
  1. FILSPARI [Suspect]
     Active Substance: SPARSENTAN
     Indication: IgA nephropathy
     Dosage: EXPIRY DATE: 31-MAY-2026.?MAINTENANCE DOSE: SEP-2024
     Route: 048
     Dates: start: 202408

REACTIONS (4)
  - Anger [Recovered/Resolved]
  - Erythema [Recovered/Resolved]
  - Fatigue [None]
  - Pain in jaw [Unknown]
